FAERS Safety Report 19172190 (Version 1)
Quarter: 2021Q2

REPORT INFORMATION
  Report Type: Report from Study
  Country: US (occurrence: US)
  Receive Date: 20210423
  Receipt Date: 20210423
  Transmission Date: 20210717
  Serious: Yes (Hospitalization)
  Sender: FDA-Public Use
  Company Number: US-JNJFOC-20210429380

PATIENT
  Age: 49 Year
  Sex: Female
  Weight: 60.9 kg

DRUGS (3)
  1. AMLODIPINE [Concomitant]
     Active Substance: AMLODIPINE BESYLATE
  2. SELEXIPAG [Suspect]
     Active Substance: SELEXIPAG
     Indication: PULMONARY ARTERIAL HYPERTENSION
     Route: 048
  3. WARFARIN [Concomitant]
     Active Substance: WARFARIN

REACTIONS (5)
  - Blood count abnormal [Unknown]
  - Blood pressure abnormal [Unknown]
  - Pain in extremity [Unknown]
  - Fatigue [Unknown]
  - Neck pain [Unknown]

NARRATIVE: CASE EVENT DATE: 20210327
